FAERS Safety Report 9914847 (Version 2)
Quarter: 2014Q1

REPORT INFORMATION
  Report Type: Spontaneous
  Country: FR (occurrence: FR)
  Receive Date: 20140220
  Receipt Date: 20140228
  Transmission Date: 20141002
  Serious: Yes (Death, Hospitalization, Other)
  Sender: FDA-Public Use
  Company Number: FR-TAKEDA-2014TUS001165

PATIENT
  Sex: 0

DRUGS (9)
  1. ADENURIC [Suspect]
     Indication: GOUT
     Dosage: UNK
     Route: 048
     Dates: start: 201311, end: 20131128
  2. AUGMENTIN [Suspect]
     Indication: INFECTION
     Dosage: UNK
     Route: 048
     Dates: start: 201311, end: 201311
  3. FURADANTINE [Suspect]
     Indication: URINARY TRACT INFECTION
     Dosage: UNK
     Route: 048
     Dates: start: 20131115, end: 201311
  4. COUMADINE [Concomitant]
     Indication: PROPHYLAXIS
     Dosage: 2 MG, QD
     Route: 048
  5. CORDARONE [Concomitant]
     Indication: PRODUCT USED FOR UNKNOWN INDICATION
     Dosage: UNK
     Route: 048
  6. DUROGESIC [Concomitant]
     Indication: PRODUCT USED FOR UNKNOWN INDICATION
     Dosage: UNK
     Route: 062
  7. NOVOMIX [Concomitant]
     Indication: PRODUCT USED FOR UNKNOWN INDICATION
     Dosage: 18 U IN THE MORNING, 20 U AT NOON, AND 20 U IN THE EVENING
     Route: 058
  8. LASILIX                            /00032601/ [Concomitant]
     Indication: PRODUCT USED FOR UNKNOWN INDICATION
     Route: 048
  9. THERALENE [Concomitant]
     Indication: PRODUCT USED FOR UNKNOWN INDICATION
     Route: 048

REACTIONS (4)
  - Cachexia [Fatal]
  - Leukocyturia [Unknown]
  - Drug hypersensitivity [Unknown]
  - Renal failure acute [Recovered/Resolved]
